FAERS Safety Report 18056768 (Version 1)
Quarter: 2020Q3

REPORT INFORMATION
  Report Type: Spontaneous
  Country: CA (occurrence: CA)
  Receive Date: 20200722
  Receipt Date: 20200722
  Transmission Date: 20201103
  Serious: Yes (Other)
  Sender: FDA-Public Use
  Company Number: CA-TEVA-2020-CA-1802334

PATIENT
  Age: 6 Year
  Sex: Male
  Weight: 25 kg

DRUGS (29)
  1. CEFUROXIME. [Concomitant]
     Active Substance: CEFUROXIME
  2. POLYETHYLENE GLYCOL [Concomitant]
     Active Substance: POLYETHYLENE GLYCOLS
  3. VANCOMYCIN [Concomitant]
     Active Substance: VANCOMYCIN
  4. ACYCLOVIR. [Concomitant]
     Active Substance: ACYCLOVIR
  5. CEFOTAXIME [Concomitant]
     Active Substance: CEFOTAXIME SODIUM
  6. LORAZEPAM. [Concomitant]
     Active Substance: LORAZEPAM
  7. OSELTAMIVIR [Concomitant]
     Active Substance: OSELTAMIVIR
  8. METHYLPREDNISOLONE NOS [Suspect]
     Active Substance: METHYLPREDNISOLONE
     Indication: ADRENOCORTICAL STEROID THERAPY
     Dosage: 36 MILLIGRAM DAILY;
     Route: 042
  9. BIOTIN [Concomitant]
     Active Substance: BIOTIN
  10. FENTANYL. [Concomitant]
     Active Substance: FENTANYL
  11. ISOPROTERENOL HCL [Concomitant]
     Active Substance: ISOPROTERENOL HYDROCHLORIDE
  12. MIDAZOLAM (UNKNOWN) [Concomitant]
     Active Substance: MIDAZOLAM HYDROCHLORIDE
  13. KINERET [Concomitant]
     Active Substance: ANAKINRA
  14. L?CARNITINE [Concomitant]
     Active Substance: LEVOCARNITINE
  15. METHYLPREDNISOLONE NOS [Suspect]
     Active Substance: METHYLPREDNISOLONE
     Dosage: 750 MILLIGRAM DAILY;
     Route: 042
  16. METHYLPREDNISOLONE NOS [Suspect]
     Active Substance: METHYLPREDNISOLONE
     Dosage: 50 MILLIGRAM DAILY;
     Route: 042
  17. FAMOTIDINE. [Concomitant]
     Active Substance: FAMOTIDINE
  18. FUROSEMIDE. [Concomitant]
     Active Substance: FUROSEMIDE
  19. PIPERACILLIN AND TAZOBACTAM [Concomitant]
     Active Substance: PIPERACILLIN SODIUM\TAZOBACTAM SODIUM
  20. THIAMINE. [Concomitant]
     Active Substance: THIAMINE
  21. UBIQUINOL [Concomitant]
     Active Substance: UBIQUINOL
  22. BACLOFEN. [Concomitant]
     Active Substance: BACLOFEN
  23. DIAZEPAM. [Concomitant]
     Active Substance: DIAZEPAM
  24. IBUPROFEN. [Concomitant]
     Active Substance: IBUPROFEN
  25. INFLIXIMAB [Concomitant]
     Active Substance: INFLIXIMAB
  26. MORPHINE [Concomitant]
     Active Substance: MORPHINE
  27. RIBOFLAVINE TAB 100MG [Concomitant]
  28. ACETAMINOPHEN. [Concomitant]
     Active Substance: ACETAMINOPHEN
  29. PROPOFOL. [Concomitant]
     Active Substance: PROPOFOL

REACTIONS (2)
  - Left ventricular hypertrophy [Unknown]
  - Electrocardiogram abnormal [Unknown]
